FAERS Safety Report 4851385-3 (Version None)
Quarter: 2005Q4

REPORT INFORMATION
  Report Type: 
  Country: None (occurrence: None)
  Receive Date: 20051208
  Receipt Date: 20051116
  Transmission Date: 20060501
  Serious: Yes (Other)
  Sender: FDA-Public Use
  Company Number: ACO_0195_2005

PATIENT
  Age: 61 Year
  Sex: Female

DRUGS (7)
  1. TERNELIN [Suspect]
     Indication: BRACHIAL PLEXOPATHY
     Dosage: 3 MG ONCE PO
     Route: 048
     Dates: start: 20050312, end: 20050312
  2. CLARITIN [Suspect]
     Indication: RHINITIS ALLERGIC
     Dosage: 10 MG ONCE UNK
     Dates: start: 20050312, end: 20050312
  3. VOLTAREN [Concomitant]
  4. EBASTEL [Concomitant]
  5. MYONAL [Concomitant]
  6. LOXONIN [Concomitant]
  7. SELBEX [Concomitant]

REACTIONS (1)
  - ANAPHYLACTIC SHOCK [None]
